FAERS Safety Report 10194727 (Version 1)
Quarter: 2014Q2

REPORT INFORMATION
  Report Type: Not Available
  Country: US (occurrence: US)
  Receive Date: 20140526
  Receipt Date: 20140526
  Transmission Date: 20141212
  Serious: No
  Sender: FDA-Public Use
  Company Number: US-LUPIN PHARMACEUTICALS INC.-2014-01058

PATIENT
  Sex: Female
  Weight: 108.96 kg

DRUGS (3)
  1. AMLODIPINE BESYLATE AND BENAZEPRIL HYDROCHLORIDE CAPSULES 5MG/10MG [Suspect]
     Indication: HYPERTENSION
     Dates: start: 201104, end: 201402
  2. LEVOTHYROXINE SODIUM TABLETS (SYNTHROID) [Concomitant]
     Indication: PRODUCT USED FOR UNKNOWN INDICATION
     Route: 065
  3. ACETYLSALICYLIC ACID (ASPIRIN) [Concomitant]
     Indication: PRODUCT USED FOR UNKNOWN INDICATION
     Route: 065

REACTIONS (1)
  - Calcinosis [Not Recovered/Not Resolved]
